FAERS Safety Report 18964653 (Version 8)
Quarter: 2021Q4

REPORT INFORMATION
  Report Type: Spontaneous
  Country: GB (occurrence: GB)
  Receive Date: 20210303
  Receipt Date: 20211107
  Transmission Date: 20220303
  Serious: Yes (Death, Other)
  Sender: FDA-Public Use
  Company Number: GB-GSKCCFEMEA-CASE-01140699_AE-40315

PATIENT
  Sex: Female

DRUGS (21)
  1. CIPROFLOXACIN [Suspect]
     Active Substance: CIPROFLOXACIN
     Indication: Product used for unknown indication
     Dosage: UNK
     Route: 065
  2. CIPROFLOXACIN [Suspect]
     Active Substance: CIPROFLOXACIN
     Dosage: CIPROFLOXACIN LACTATE
     Route: 065
  3. CIPROFLOXACIN [Suspect]
     Active Substance: CIPROFLOXACIN
     Dosage: CIPROFLOXACIN HYDROCHLORIDE
     Route: 065
  4. ONDANSETRON [Suspect]
     Active Substance: ONDANSETRON
     Indication: Product used for unknown indication
     Dosage: UNK
     Route: 065
  5. SALMETEROL [Suspect]
     Active Substance: SALMETEROL
     Indication: Product used for unknown indication
     Dosage: SALMETEROL XINAFOATE DISKUS DRY POWDER INHALER DEVICE
     Route: 065
  6. SALMETEROL [Suspect]
     Active Substance: SALMETEROL
     Dosage: 25 MCG,
     Route: 055
  7. SALMETEROL [Suspect]
     Active Substance: SALMETEROL
     Dosage: 100 MCG
     Route: 055
  8. SALMETEROL [Suspect]
     Active Substance: SALMETEROL
     Dosage: 2 PUFF(S); 2 DF (2 PUFFS) (AEROSOL INHALATION)
     Route: 055
  9. SALMETEROL [Suspect]
     Active Substance: SALMETEROL
     Dosage: 2 DOSAGE FORM,2 PUFF(S)
     Route: 055
  10. SALMETEROL [Suspect]
     Active Substance: SALMETEROL
     Dosage: 2 DF (2 PUFFS) (AEROSOL INHALATION) [2 PUFF(S), 25 MCG (DRY POWDER INHALER DEVICE INHALER)
     Route: 055
  11. SALMETEROL [Suspect]
     Active Substance: SALMETEROL
     Dosage: 2 DF
     Route: 055
  12. SALMETEROL [Suspect]
     Active Substance: SALMETEROL
     Dosage: 25 MCG
     Route: 055
  13. SALMETEROL [Suspect]
     Active Substance: SALMETEROL
     Dosage: 25 MCG (DRY POWDER INHALER DEVICE INHALER) , 2 DF
     Route: 055
  14. ALBUTEROL SULFATE [Suspect]
     Active Substance: ALBUTEROL SULFATE
     Indication: Product used for unknown indication
     Route: 065
  15. ALBUTEROL [Suspect]
     Active Substance: ALBUTEROL
     Indication: Product used for unknown indication
     Dosage: 100 MICROGRAM
     Route: 065
  16. ENOXAPARIN [Suspect]
     Active Substance: ENOXAPARIN
     Indication: Product used for unknown indication
     Dosage: UNK
     Route: 065
  17. SEREVENT DISKUS [Suspect]
     Active Substance: SALMETEROL XINAFOATE
     Indication: Product used for unknown indication
     Dosage: SEREVENT EVOHALER , 2 PUFF(S),UNIT DOSE : 2 DOSAGE FORMS
     Route: 055
  18. SEREVENT DISKUS [Suspect]
     Active Substance: SALMETEROL XINAFOATE
     Dosage: 25 UG, (2 PUFFS)
     Route: 055
  19. SEREVENT DISKUS [Suspect]
     Active Substance: SALMETEROL XINAFOATE
     Dosage: 2 DF (2 PUFFS) (AEROSOL INHALATION) [2 PUFF(S), 25 MCG (DRY POWDER INHALER DEVICE INHALER)]
     Route: 055
  20. SEREVENT DISKUS [Suspect]
     Active Substance: SALMETEROL XINAFOATE
     Dosage: 2 PUFF(S), 25 MCG
     Route: 055
  21. SEREVENT DISKUS [Suspect]
     Active Substance: SALMETEROL XINAFOATE
     Dosage: 100 MCG
     Route: 055

REACTIONS (2)
  - Death [Fatal]
  - Dysphonia [Not Recovered/Not Resolved]
